FAERS Safety Report 21526134 (Version 1)
Quarter: 2022Q4

REPORT INFORMATION
  Report Type: Spontaneous
  Country: CN (occurrence: CN)
  Receive Date: 20221031
  Receipt Date: 20221031
  Transmission Date: 20230113
  Serious: Yes (Other)
  Sender: FDA-Public Use
  Company Number: None

PATIENT
  Age: 59 Year
  Sex: Female
  Weight: 57 kg

DRUGS (7)
  1. CYCLOPHOSPHAMIDE [Suspect]
     Active Substance: CYCLOPHOSPHAMIDE
     Indication: Breast cancer female
     Dosage: 960 MG, QD, DILUTED WITH NS 50 ML, FIRST CHEMOTHERAPY
     Route: 042
     Dates: start: 20220826, end: 20220826
  2. CYCLOPHOSPHAMIDE [Suspect]
     Active Substance: CYCLOPHOSPHAMIDE
     Indication: Chemotherapy
  3. SODIUM CHLORIDE [Suspect]
     Active Substance: SODIUM CHLORIDE
     Indication: Medication dilution
     Dosage: 50 ML, QD USED TO DILUTE 960 MG CYCLOPHOSPHAMIDE, FIRST CHEMOTHERAPY
     Route: 042
     Dates: start: 20220826, end: 20220826
  4. SODIUM CHLORIDE [Suspect]
     Active Substance: SODIUM CHLORIDE
     Dosage: 250 ML, QD USED TO DILUTE 144 MG EPIRUBICIN HYDROCHLORIDE (PHARMORUBICIN), FIRST CHEMOTHERAPY
     Route: 041
     Dates: start: 20220826, end: 20220826
  5. EPIRUBICIN [Suspect]
     Active Substance: EPIRUBICIN
     Indication: Breast cancer female
     Dosage: 144 MG, QD DILUTED WITH NS 250 ML, FIRST CHEMOTHERAPY
     Route: 041
     Dates: start: 20220826, end: 20220826
  6. EPIRUBICIN [Suspect]
     Active Substance: EPIRUBICIN
     Indication: Chemotherapy
  7. AI DUO [Concomitant]
     Indication: Product used for unknown indication
     Dosage: ON THIRD DAY, 6 MG
     Route: 058

REACTIONS (2)
  - White blood cell count decreased [Recovered/Resolved]
  - Agranulocytosis [Recovered/Resolved]

NARRATIVE: CASE EVENT DATE: 20220902
